FAERS Safety Report 16325334 (Version 3)
Quarter: 2019Q2

REPORT INFORMATION
  Report Type: Spontaneous
  Country: US (occurrence: US)
  Receive Date: 20190517
  Receipt Date: 20190619
  Transmission Date: 20190711
  Serious: Yes (Hospitalization)
  Sender: FDA-Public Use
  Company Number: US-APOTEX-2019AP013124

PATIENT
  Sex: Male

DRUGS (2)
  1. FENTANYL. [Suspect]
     Active Substance: FENTANYL
     Indication: PRODUCT USED FOR UNKNOWN INDICATION
     Dosage: ONCE EVERY 72 HOURS
     Route: 062
  2. AMITIPTYLINE [Suspect]
     Active Substance: AMITRIPTYLINE
     Indication: NEURALGIA
     Dosage: UNK
     Route: 065

REACTIONS (12)
  - Product substitution issue [Unknown]
  - Product quality issue [Unknown]
  - Bone disorder [Unknown]
  - Dysuria [Unknown]
  - Device leakage [Unknown]
  - Withdrawal syndrome [Unknown]
  - Product physical issue [Unknown]
  - Aphasia [Unknown]
  - Neuralgia [Unknown]
  - Overdose [Unknown]
  - Ill-defined disorder [Unknown]
  - Heart rate increased [Unknown]
